FAERS Safety Report 15004178 (Version 2)
Quarter: 2018Q2

REPORT INFORMATION
  Report Type: Report from Study
  Country: GB (occurrence: GB)
  Receive Date: 20180613
  Receipt Date: 20180628
  Transmission Date: 20180711
  Serious: Yes (Hospitalization)
  Sender: FDA-Public Use
  Company Number: GB-TAKEDA-2018MPI007354

PATIENT
  Age: 78 Year

DRUGS (7)
  1. VELCADE [Suspect]
     Active Substance: BORTEZOMIB
     Dosage: 2.5 MG, UNK
     Route: 058
  2. BENDAMUSTINE [Suspect]
     Active Substance: BENDAMUSTINE
     Indication: PLASMA CELL MYELOMA
     Dosage: UNK
     Route: 042
  3. DEXAMETHASONE. [Suspect]
     Active Substance: DEXAMETHASONE
     Indication: PLASMA CELL MYELOMA
     Dosage: UNK
     Route: 065
     Dates: start: 20180529
  4. VELCADE [Suspect]
     Active Substance: BORTEZOMIB
     Indication: PLASMA CELL MYELOMA
     Dosage: UNK
     Route: 058
     Dates: start: 20180529
  5. DEXAMETHASONE. [Suspect]
     Active Substance: DEXAMETHASONE
     Dosage: UNK
     Route: 065
     Dates: start: 20180530
  6. BENDAMUSTINE [Suspect]
     Active Substance: BENDAMUSTINE
     Dosage: 125 MG, UNK
     Route: 042
  7. DEXAMETHASONE. [Suspect]
     Active Substance: DEXAMETHASONE
     Dosage: 20 MG, UNK
     Route: 065

REACTIONS (4)
  - Atrial fibrillation [Not Recovered/Not Resolved]
  - Fall [Not Recovered/Not Resolved]
  - Flank pain [Recovered/Resolved]
  - Vomiting [Recovered/Resolved]

NARRATIVE: CASE EVENT DATE: 20180527
